FAERS Safety Report 23782048 (Version 2)
Quarter: 2024Q3

REPORT INFORMATION
  Report Type: Spontaneous
  Country: PT (occurrence: PT)
  Receive Date: 20240425
  Receipt Date: 20240718
  Transmission Date: 20241016
  Serious: Yes (Other)
  Sender: ROCHE
  Company Number: None

PATIENT
  Age: 66 Year
  Sex: Female

DRUGS (5)
  1. KADCYLA [Suspect]
     Active Substance: ADO-TRASTUZUMAB EMTANSINE
     Indication: Breast cancer
     Route: 065
     Dates: start: 20231115
  2. DEXTAZIN [Concomitant]
  3. MIRTAZAPINE [Concomitant]
     Active Substance: MIRTAZAPINE
  4. MEXAZOLAM [Concomitant]
     Active Substance: MEXAZOLAM
  5. INDERAL [Concomitant]
     Active Substance: PROPRANOLOL HYDROCHLORIDE

REACTIONS (5)
  - Nausea [Recovered/Resolved]
  - Abdominal pain [Recovered/Resolved]
  - Myalgia [Recovered/Resolved]
  - Fatigue [Recovered/Resolved]
  - Decreased appetite [Recovered/Resolved]

NARRATIVE: CASE EVENT DATE: 20240310
